FAERS Safety Report 4781330-0 (Version None)
Quarter: 2005Q3

REPORT INFORMATION
  Report Type: 
  Country: None (occurrence: None)
  Receive Date: 20050914
  Receipt Date: 20050720
  Transmission Date: 20060218
  Serious: No
  Sender: FDA-Public Use
  Company Number: IND-AE-05-SAN-044

PATIENT
  Age: 73 Year
  Sex: Male
  Weight: 74.8435 kg

DRUGS (6)
  1. SANCTURA [Suspect]
     Indication: HYPERTONIC BLADDER
     Dosage: 20MG QD; ORAL
     Route: 048
     Dates: start: 20050620
  2. LISINOPRIL [Concomitant]
  3. FLOMAX [Concomitant]
  4. PROSCAR [Concomitant]
  5. SYNTHROID [Concomitant]
  6. KLONOPIN [Concomitant]

REACTIONS (1)
  - TACHYCARDIA [None]
